FAERS Safety Report 4413045-2 (Version None)
Quarter: 2004Q3

REPORT INFORMATION
  Report Type: 
  Country: None (occurrence: None)
  Receive Date: 20040730
  Receipt Date: 20040730
  Transmission Date: 20050211
  Serious: Yes (Other)
  Sender: FDA-Public Use
  Company Number: None

PATIENT
  Sex: Male
  Weight: 59.4212 kg

DRUGS (11)
  1. MEGESTROL [Suspect]
     Indication: DECREASED APPETITE
     Dosage: 400 MG BID
     Dates: start: 20040517, end: 20040619
  2. ACETAMINOPHEN [Concomitant]
  3. CIPROFLOXACIN HCL [Concomitant]
  4. DEXTROSE/NACL/KCL [Concomitant]
  5. INSULIN REG HUMAN (NOVOLIN R) [Concomitant]
  6. KETOROLAC TROMETHAMINE [Concomitant]
  7. MEGESTROL ACETATE [Concomitant]
  8. NYSTATIN [Concomitant]
  9. OCUVITE [Concomitant]
  10. RANITIDINE HCL [Concomitant]
  11. VANCOMYCIN HCL [Concomitant]

REACTIONS (2)
  - BLOOD ACID PHOSPHATASE INCREASED [None]
  - CHOLESTASIS [None]
